FAERS Safety Report 5061233-7 (Version None)
Quarter: 2006Q3

REPORT INFORMATION
  Report Type: 
  Country: None (occurrence: None)
  Receive Date: 20060725
  Receipt Date: 20060717
  Transmission Date: 20061208
  Serious: Yes (Other)
  Sender: FDA-Public Use
  Company Number: US-JNJFOC-20060605485

PATIENT
  Sex: Female
  Weight: 78.02 kg

DRUGS (6)
  1. RISPERDAL [Suspect]
     Indication: SELF MUTILATION
     Route: 048
  2. RISPERDAL [Suspect]
     Indication: BIPOLAR DISORDER
     Route: 048
  3. PREDNISONE [Suspect]
     Route: 048
  4. PREDNISONE [Suspect]
     Route: 048
  5. PREDNISONE [Suspect]
     Indication: GLOMERULONEPHRITIS PROLIFERATIVE
     Dosage: THREE 20 MG TABLETS
     Route: 048
  6. LIPITOR [Concomitant]
     Indication: BLOOD CHOLESTEROL

REACTIONS (3)
  - CATATONIA [None]
  - CONFUSIONAL STATE [None]
  - GLOMERULONEPHRITIS PROLIFERATIVE [None]
